FAERS Safety Report 9730224 (Version 2)
Quarter: 2013Q4

REPORT INFORMATION
  Report Type: Spontaneous
  Country: ES (occurrence: ES)
  Receive Date: 20131202
  Receipt Date: 20131202
  Transmission Date: 20140711
  Serious: Yes (Hospitalization, Other)
  Sender: FDA-Public Use
  Company Number: ES-JNJFOC-20131004083

PATIENT
  Age: 66 Year
  Sex: Female
  Weight: 74.83 kg

DRUGS (12)
  1. XARELTO [Suspect]
     Indication: THROMBOSIS PROPHYLAXIS
     Route: 048
     Dates: start: 201308
  2. XARELTO [Suspect]
     Indication: THROMBOSIS PROPHYLAXIS
     Route: 048
     Dates: start: 201311, end: 201311
  3. XARELTO [Suspect]
     Indication: PULMONARY EMBOLISM
     Route: 048
     Dates: start: 201311, end: 201311
  4. XARELTO [Suspect]
     Indication: PULMONARY EMBOLISM
     Route: 048
     Dates: start: 201308
  5. XARELTO [Suspect]
     Indication: DEEP VEIN THROMBOSIS
     Route: 048
     Dates: start: 201308
  6. XARELTO [Suspect]
     Indication: DEEP VEIN THROMBOSIS
     Route: 048
     Dates: start: 201311, end: 201311
  7. TRANXILIUM [Concomitant]
     Indication: ANXIETY
     Route: 048
  8. TRANXILIUM [Concomitant]
     Indication: DEPRESSION
     Route: 048
  9. VENLAFAXINE [Concomitant]
     Indication: ANXIETY
     Route: 048
  10. VENLAFAXINE [Concomitant]
     Indication: DEPRESSION
     Route: 048
  11. HYDROCHLOROTHIAZIDE AND OLMESARTAN [Concomitant]
     Indication: HYPERTENSION
     Route: 048
  12. OMEPRAZOLE [Concomitant]
     Indication: DYSPEPSIA
     Route: 065

REACTIONS (2)
  - Haemarthrosis [Recovered/Resolved]
  - Arthralgia [Unknown]
